FAERS Safety Report 23898186 (Version 2)
Quarter: 2024Q2

REPORT INFORMATION
  Report Type: Report from Study
  Country: US (occurrence: US)
  Receive Date: 20240524
  Receipt Date: 20240531
  Transmission Date: 20240716
  Serious: Yes (Other)
  Sender: FDA-Public Use
  Company Number: US-BAUSCH-BL-2024-007987

PATIENT
  Age: 43 Year
  Sex: Female
  Weight: 98.064 kg

DRUGS (2)
  1. BUPROPION [Suspect]
     Active Substance: BUPROPION
     Indication: Depression
     Route: 065
     Dates: start: 2015, end: 2017
  2. BUPROPION [Suspect]
     Active Substance: BUPROPION
     Indication: Stress

REACTIONS (17)
  - Polycystic ovarian syndrome [Not Recovered/Not Resolved]
  - Lipoedema [Not Recovered/Not Resolved]
  - Inflammation [Not Recovered/Not Resolved]
  - Acne [Not Recovered/Not Resolved]
  - Hair disorder [Not Recovered/Not Resolved]
  - Disease recurrence [Not Recovered/Not Resolved]
  - Fibromyalgia [Not Recovered/Not Resolved]
  - Arthropathy [Not Recovered/Not Resolved]
  - Rash [Not Recovered/Not Resolved]
  - Pain [Not Recovered/Not Resolved]
  - Allergic reaction to excipient [Not Recovered/Not Resolved]
  - Urticaria chronic [Not Recovered/Not Resolved]
  - Depression [Not Recovered/Not Resolved]
  - Angiopathy [Unknown]
  - Weight increased [Unknown]
  - Swelling [Unknown]
  - Patient dissatisfaction with treatment [Unknown]
